FAERS Safety Report 5191937-7 (Version None)
Quarter: 2006Q4

REPORT INFORMATION
  Report Type: 
  Country: None (occurrence: None)
  Receive Date: 20061227
  Receipt Date: 20061215
  Transmission Date: 20070319
  Serious: Yes (Other)
  Sender: FDA-Public Use
  Company Number: RU-AVENTIS-200622712GDDC

PATIENT
  Age: 89 Year
  Sex: Female

DRUGS (2)
  1. CLAFORAN [Suspect]
     Indication: PNEUMONIA
     Route: 042
     Dates: start: 20061101, end: 20061101
  2. THEOPEC [Concomitant]
     Dosage: DOSE: UNK

REACTIONS (2)
  - LOSS OF CONSCIOUSNESS [None]
  - VOMITING [None]
